FAERS Safety Report 7563423-8 (Version None)
Quarter: 2011Q2

REPORT INFORMATION
  Report Type: 
  Country: None (occurrence: None)
  Receive Date: 20110622
  Receipt Date: 20110614
  Transmission Date: 20111010
  Serious: Yes (Other)
  Sender: FDA-Public Use
  Company Number: B0725115A

PATIENT
  Age: 8 Year
  Sex: Male

DRUGS (2)
  1. ONON [Concomitant]
     Indication: ASTHMA
     Route: 048
     Dates: start: 20071001
  2. FLUTICASONE PROPIONATE [Suspect]
     Indication: ASTHMA
     Route: 055
     Dates: start: 20071026

REACTIONS (2)
  - PETIT MAL EPILEPSY [None]
  - ALTERED STATE OF CONSCIOUSNESS [None]
